FAERS Safety Report 5463506-2 (Version None)
Quarter: 2007Q3

REPORT INFORMATION
  Report Type: 
  Country: None (occurrence: None)
  Receive Date: 20070920
  Receipt Date: 20070910
  Transmission Date: 20080115
  Serious: Yes (Other)
  Sender: FDA-Public Use
  Company Number: US-PFIZER INC-2007076016

PATIENT
  Sex: Female

DRUGS (3)
  1. LIPITOR [Suspect]
     Indication: BLOOD CHOLESTEROL
  2. ZETIA [Interacting]
     Dates: start: 20070601, end: 20070712
  3. CRESTOR [Interacting]
     Dates: start: 20070601, end: 20070712

REACTIONS (9)
  - CARDIAC FAILURE CONGESTIVE [None]
  - DEHYDRATION [None]
  - DRUG INTERACTION [None]
  - ILL-DEFINED DISORDER [None]
  - MUSCULAR WEAKNESS [None]
  - MYALGIA [None]
  - RENAL FAILURE [None]
  - RENAL FAILURE CHRONIC [None]
  - WEIGHT DECREASED [None]
